FAERS Safety Report 9387390 (Version 3)
Quarter: 2013Q3

REPORT INFORMATION
  Report Type: Spontaneous
  Country: DE (occurrence: CA)
  Receive Date: 20130708
  Receipt Date: 20130827
  Transmission Date: 20140515
  Serious: Yes (Death, Hospitalization)
  Sender: FDA-Public Use
  Company Number: CA-FRI-1000046442

PATIENT
  Age: 79 Year
  Sex: Male
  Weight: 74 kg

DRUGS (16)
  1. ROFLUMILAST [Suspect]
     Indication: CHRONIC OBSTRUCTIVE PULMONARY DISEASE
     Dosage: 500 MCG
     Route: 048
     Dates: start: 20121210, end: 20130616
  2. ADVAIR [Concomitant]
     Dosage: 2 PUFFS (500/50)
  3. VENTOLIN [Concomitant]
     Dosage: 2.5 MG
  4. ATROVENT [Concomitant]
     Dosage: 500 MCG
  5. TIOTROPIUM [Concomitant]
     Dosage: 18 MCG
  6. TRAMADOL [Concomitant]
     Dosage: 100 MG
  7. FUROSEMIDE [Concomitant]
     Dosage: 40 MG
  8. WARFARIN [Concomitant]
     Dosage: 5 MG
  9. FLOMAX [Concomitant]
     Dosage: 0.4 MG
  10. GABAPENTIN [Concomitant]
     Dosage: 1200 MG
  11. PANTOPRAZOLE [Concomitant]
     Dosage: 80 MG
  12. PREDNISONE [Concomitant]
     Dosage: 15 MG
  13. MINOCYCLINE [Concomitant]
     Dosage: 50 MG
  14. NITROGLYCERINE [Concomitant]
     Dosage: 3-4 TIMES A WEEK
     Route: 060
  15. VENTOLIN PLUS MUCOMYST [Concomitant]
     Dosage: VENTOLIN 5 MG MUCOMYST 20%1-2 ML BID PRN
  16. VENTOLIN PLUS MUCOMYST [Concomitant]
     Dosage: MUCOMYST 1-2 ML WITH VENTOLIN NEB.

REACTIONS (4)
  - Pneumonia [Fatal]
  - Groin abscess [Recovering/Resolving]
  - Somnolence [Not Recovered/Not Resolved]
  - Fatigue [Not Recovered/Not Resolved]
